FAERS Safety Report 6809875-X (Version None)
Quarter: 2010Q2

REPORT INFORMATION
  Report Type: 
  Country: None (occurrence: None)
  Receive Date: 20100625
  Receipt Date: 20100609
  Transmission Date: 20101027
  Serious: Yes (Disabling, Other)
  Sender: FDA-Public Use
  Company Number: 006616

PATIENT
  Age: 72 Year
  Sex: Female
  Weight: 60.4 kg

DRUGS (7)
  1. MACUGEN [Suspect]
     Indication: MACULAR DEGENERATION
     Dosage: 0.3MG IN THE RIGHT EYE, INTRAOCULAR
     Route: 031
     Dates: start: 20100223
  2. MOXIFLOXACIN HYDROCHLORIDE (MOXIELOXACIN HYDROCHLORIDE) [Concomitant]
  3. LEVOFLOXACIN [Concomitant]
  4. RINDERON A (BETAMFTHASONE SODIUM PHOSPHATE, NEOMYCIN SULFATE) [Concomitant]
  5. BROMFENAC SODIUM (BROMFENAC SODIUM) [Concomitant]
  6. FLOMOX (CEFCAPENE PIVOXIL HYDROCHLORIDE) [Concomitant]
  7. SELBEX (TEPRENONE) [Concomitant]

REACTIONS (2)
  - OPTIC ISCHAEMIC NEUROPATHY [None]
  - VISUAL ACUITY REDUCED [None]
